FAERS Safety Report 10252413 (Version 1)
Quarter: 2014Q2

REPORT INFORMATION
  Report Type: Spontaneous
  Country: IT (occurrence: IT)
  Receive Date: 20140623
  Receipt Date: 20140623
  Transmission Date: 20141212
  Serious: Yes (Other)
  Sender: FDA-Public Use
  Company Number: IT-MYLANLABS-2014S1014414

PATIENT
  Age: 34 Year
  Sex: Male

DRUGS (2)
  1. TOPIRAMATE [Suspect]
     Indication: COMPLEX PARTIAL SEIZURES
     Dosage: SLOWLY TITRATED UP TO 250MG PER DAY
     Route: 065
  2. CARBAMAZEPINE [Concomitant]
     Indication: TEMPORAL LOBE EPILEPSY
     Dosage: UP TO 1200MG PER DAY
     Route: 065

REACTIONS (2)
  - Periodic limb movement disorder [Recovering/Resolving]
  - Insomnia [Unknown]
